FAERS Safety Report 5147005-3 (Version None)
Quarter: 2006Q4

REPORT INFORMATION
  Report Type: 
  Country: None (occurrence: None)
  Receive Date: 20061109
  Receipt Date: 20061031
  Transmission Date: 20070319
  Serious: Yes (Congenital Anomaly)
  Sender: FDA-Public Use
  Company Number: US-JNJFOC-20061101551

PATIENT
  Sex: Female

DRUGS (4)
  1. TOPAMAX [Suspect]
     Indication: DRUG EXPOSURE DURING PREGNANCY
  2. IMITREX [Suspect]
     Indication: DRUG EXPOSURE DURING PREGNANCY
  3. MIRCETTE [Concomitant]
     Indication: DRUG EXPOSURE DURING PREGNANCY
  4. EPIDURAL ANESTHESIA [Concomitant]
     Indication: DRUG EXPOSURE DURING PREGNANCY
     Route: 008

REACTIONS (1)
  - PYLORIC STENOSIS [None]
